FAERS Safety Report 5890359-0 (Version None)
Quarter: 2008Q3

REPORT INFORMATION
  Report Type: 
  Country: None (occurrence: None)
  Receive Date: 20080918
  Receipt Date: 20080914
  Transmission Date: 20090109
  Serious: Yes (Other)
  Sender: FDA-Public Use
  Company Number: 2008SP018974

PATIENT
  Age: 43 Year
  Sex: Female

DRUGS (3)
  1. REBETOL [Suspect]
     Indication: HEPATITIS C
     Dosage: PO
     Route: 048
     Dates: start: 20080908
  2. INTRON A [Suspect]
     Indication: HEPATITIS C
     Dates: start: 20080908
  3. ZOLOFT [Concomitant]

REACTIONS (9)
  - DIZZINESS [None]
  - DIZZINESS POSTURAL [None]
  - FALL [None]
  - HEADACHE [None]
  - JAW DISORDER [None]
  - LOSS OF CONSCIOUSNESS [None]
  - ORAL HERPES [None]
  - PLATELET COUNT DECREASED [None]
  - STOMACH DISCOMFORT [None]
